FAERS Safety Report 5038212-9 (Version None)
Quarter: 2006Q2

REPORT INFORMATION
  Report Type: 
  Country: None (occurrence: None)
  Receive Date: 20060626
  Receipt Date: 20060614
  Transmission Date: 20061013
  Serious: Yes (Hospitalization, Other)
  Sender: FDA-Public Use
  Company Number: USA-2006-0024437

PATIENT
  Age: 45 Year
  Sex: Female

DRUGS (3)
  1. OXYCONTIN [Suspect]
     Indication: CANCER PAIN
  2. SB - 715992 () [Suspect]
     Indication: NEOPLASM MALIGNANT
     Dosage: 18 MG/M2, SEE TEXT, INTRAVENOUS
     Route: 042
     Dates: start: 20060509
  3. CAPECITABINE (CAPECITABINE) [Suspect]
     Indication: NEOPLASM MALIGNANT
     Dosage: 2000 MG/M2, SEE TEXT, ORAL
     Route: 048
     Dates: start: 20060509

REACTIONS (3)
  - ABDOMINAL PAIN UPPER [None]
  - CONSTIPATION [None]
  - FEBRILE NEUTROPENIA [None]
